FAERS Safety Report 5978574-9 (Version None)
Quarter: 2008Q4

REPORT INFORMATION
  Report Type: 
  Country: None (occurrence: None)
  Receive Date: 20081204
  Receipt Date: 20081126
  Transmission Date: 20090506
  Serious: Yes (Hospitalization)
  Sender: FDA-Public Use
  Company Number: A0759017A

PATIENT
  Age: 75 Year
  Sex: Male
  Weight: 86.4 kg

DRUGS (4)
  1. AVANDIA [Suspect]
     Dosage: 8MG TWICE PER DAY
     Route: 065
     Dates: start: 20050201, end: 20070201
  2. METFORMIN HCL [Concomitant]
     Dates: start: 20010101
  3. REGULAR INSULIN [Concomitant]
     Dates: start: 19900101
  4. GLUCOTROL [Concomitant]
     Dates: start: 20061127, end: 20061201

REACTIONS (1)
  - MYOCARDIAL INFARCTION [None]
